FAERS Safety Report 5332125-0 (Version None)
Quarter: 2007Q2

REPORT INFORMATION
  Report Type: 
  Country: None (occurrence: None)
  Receive Date: 20070523
  Receipt Date: 20070522
  Transmission Date: 20071010
  Serious: Yes (Other)
  Sender: FDA-Public Use
  Company Number: PHNR2006AU01276

PATIENT
  Sex: Female

DRUGS (2)
  1. VOLTAREN [Suspect]
     Route: 061
  2. MOBIC [Suspect]
     Route: 048

REACTIONS (7)
  - CHEST PAIN [None]
  - DEPRESSION [None]
  - FATIGUE [None]
  - LETHARGY [None]
  - MALAISE [None]
  - SOMNOLENCE [None]
  - STOMACH DISCOMFORT [None]
